FAERS Safety Report 4907141-0 (Version None)
Quarter: 2006Q1

REPORT INFORMATION
  Report Type: 
  Country: None (occurrence: None)
  Receive Date: 20060206
  Receipt Date: 20051216
  Transmission Date: 20060701
  Serious: Yes (Death, Hospitalization)
  Sender: FDA-Public Use
  Company Number: FRPFM-E-20050127-V001

PATIENT
  Age: 56 Year
  Sex: Female

DRUGS (9)
  1. NAVELBINE (VINORELBINE) SOLUTION FOR INJECTION [Suspect]
     Indication: LUNG ADENOCARCINOMA
     Route: 042
     Dates: start: 20051109, end: 20051116
  2. CISPLATIN [Concomitant]
  3. ZOPHREN [Concomitant]
  4. SOLU-MEDROL [Concomitant]
  5. ATACAND [Concomitant]
  6. ALDACTONE [Concomitant]
  7. LOGIMAX [Concomitant]
  8. EUTHYRAL [Concomitant]
  9. TAVANIC [Concomitant]

REACTIONS (16)
  - ASTHENIA [None]
  - ATRIAL FIBRILLATION [None]
  - CARDIAC ARREST [None]
  - CONDITION AGGRAVATED [None]
  - DIARRHOEA [None]
  - DYSPNOEA [None]
  - FALL [None]
  - GASTROINTESTINAL DISORDER [None]
  - HAEMATOMA [None]
  - HYPONATRAEMIA [None]
  - LEUKOPENIA [None]
  - LOSS OF CONSCIOUSNESS [None]
  - RENAL IMPAIRMENT [None]
  - SEPTIC SHOCK [None]
  - THROMBOCYTOPENIA [None]
  - VOMITING [None]
